FAERS Safety Report 15660426 (Version 1)
Quarter: 2018Q4

REPORT INFORMATION
  Report Type: Spontaneous
  Country: US (occurrence: US)
  Receive Date: 20181115
  Receipt Date: 20181115
  Transmission Date: 20190205
  Serious: Yes (Other)
  Sender: FDA-Public Use
  Company Number: None

PATIENT
  Age: 82 Year
  Sex: Female
  Weight: 44.18 kg

DRUGS (2)
  1. LEVOTHYROXINE SODIUM TABLET USP [Suspect]
     Active Substance: LEVOTHYROXINE SODIUM
     Dosage: ?          OTHER STRENGTH:50 MCG;?
  2. LEVOTHYROXINE SODIUM TABLET USP [Suspect]
     Active Substance: LEVOTHYROXINE SODIUM
     Indication: HYPOTHYROIDISM
     Dosage: ?          OTHER STRENGTH:50 MCG;QUANTITY:1 PILL;OTHER FREQUENCY:1 TIME AFTER EATIN;?
     Route: 048
     Dates: start: 20121030, end: 20180906

REACTIONS (9)
  - Malaise [None]
  - Arthralgia [None]
  - Muscle spasms [None]
  - Abdominal discomfort [None]
  - Feeling abnormal [None]
  - Eating disorder [None]
  - Eye disorder [None]
  - Eye haemorrhage [None]
  - Renal failure [None]
